FAERS Safety Report 26149440 (Version 1)
Quarter: 2025Q4

REPORT INFORMATION
  Report Type: Spontaneous
  Country: US (occurrence: US)
  Receive Date: 20251212
  Receipt Date: 20251212
  Transmission Date: 20260117
  Serious: Yes (Death)
  Sender: AMGEN
  Company Number: US-AMGEN-USASP2025242758

PATIENT

DRUGS (1)
  1. PREDNISONE [Suspect]
     Active Substance: PREDNISONE
     Indication: Diffuse large B-cell lymphoma
     Dosage: UNK
     Route: 065

REACTIONS (7)
  - Death [Fatal]
  - Diffuse large B-cell lymphoma recurrent [Fatal]
  - Neoplasm malignant [Fatal]
  - Infection [Fatal]
  - Cardiac disorder [Fatal]
  - Pulmonary toxicity [Fatal]
  - Venoocclusive liver disease [Fatal]
